FAERS Safety Report 6386674-7 (Version None)
Quarter: 2009Q4

REPORT INFORMATION
  Report Type: 
  Country: None (occurrence: None)
  Receive Date: 20091002
  Receipt Date: 20090922
  Transmission Date: 20100525
  Serious: Yes (Other)
  Sender: FDA-Public Use
  Company Number: DE-TEVA-209297ISR

PATIENT
  Sex: Female

DRUGS (3)
  1. COPAXONE [Suspect]
     Indication: MULTIPLE SCLEROSIS
     Route: 058
     Dates: start: 20090309, end: 20090907
  2. GAMMA HYDROXYBUTYRIC ACID (ECSTASY) [Suspect]
  3. DIAZEPAM [Concomitant]

REACTIONS (9)
  - ANXIETY [None]
  - CHEST DISCOMFORT [None]
  - DYSMORPHISM [None]
  - DYSPNOEA [None]
  - GENERALISED ERYTHEMA [None]
  - PANIC REACTION [None]
  - PARALYSIS [None]
  - SWELLING FACE [None]
  - TACHYCARDIA [None]
